FAERS Safety Report 17066126 (Version 1)
Quarter: 2019Q4

REPORT INFORMATION
  Report Type: Spontaneous
  Country: ZA (occurrence: ZA)
  Receive Date: 20191122
  Receipt Date: 20191122
  Transmission Date: 20200122
  Serious: Yes (Hospitalization, Other)
  Sender: FDA-Public Use
  Company Number: ZA-009507513-1911ZAF009176

PATIENT
  Age: 80 Year
  Sex: Male

DRUGS (12)
  1. ERGOCALCIFEROL. [Concomitant]
     Active Substance: ERGOCALCIFEROL
     Dosage: 50000 UNITS WEEKLEY (QW)
  2. TELMISARTAN. [Concomitant]
     Active Substance: TELMISARTAN
     Dosage: 80 MILLIGRAM, DAILY (QD)
  3. TAMBOCOR [Concomitant]
     Active Substance: FLECAINIDE ACETATE
     Dosage: 50 MILLIGRAM, IN THE EVENING (QD)
  4. BRINTELLIX [Suspect]
     Active Substance: VORTIOXETINE HYDROBROMIDE
     Indication: MAJOR DEPRESSION
     Dosage: UNK
     Dates: start: 2018
  5. AMLOC [Concomitant]
     Dosage: 5 MILLIGRAM, DAILY (QD)
  6. CYANOCOBALAMIN. [Concomitant]
     Active Substance: CYANOCOBALAMIN
     Dosage: 1 MILLILITER, EVERY 4 MONTHS
  7. INEGY 10/10 [Suspect]
     Active Substance: EZETIMIBE\SIMVASTATIN
     Indication: BLOOD CHOLESTEROL INCREASED
     Dosage: UNK
     Dates: start: 2018
  8. WARFARIN [Concomitant]
     Active Substance: WARFARIN
     Dosage: APPROXIMATELY 2 MG DAILY
  9. PURICOS [Concomitant]
     Active Substance: ALLOPURINOL
     Dosage: 300 MILLIGRAM, DAILY (QD)
  10. PEPLOC (PANTOPRAZOLE) [Concomitant]
     Dosage: 40 MILLIGRAM, DAILY (QD)
  11. TAMBOCOR [Concomitant]
     Active Substance: FLECAINIDE ACETATE
     Dosage: 100 MILLIGRAM, IN THE MORNING (QAM)
  12. EZETROL [Concomitant]
     Active Substance: EZETIMIBE
     Dosage: 10 MILLIGRAM, DAILY (QD)

REACTIONS (3)
  - Cholelithiasis [Unknown]
  - Diverticulum [Unknown]
  - Drug-induced liver injury [Recovered/Resolved]

NARRATIVE: CASE EVENT DATE: 2018
